FAERS Safety Report 15720573 (Version 6)
Quarter: 2019Q3

REPORT INFORMATION
  Report Type: Spontaneous
  Country: US (occurrence: US)
  Receive Date: 20181213
  Receipt Date: 20190731
  Transmission Date: 20191004
  Serious: Yes (Other)
  Sender: FDA-Public Use
  Company Number: US-MALLINCKRODT-T201703684

PATIENT
  Age: 58 Year
  Sex: Male
  Weight: 122 kg

DRUGS (11)
  1. H.P. ACTHAR [Suspect]
     Active Substance: CORTICOTROPIN
     Dosage: 80 UNITS/1 ML, EVERY 48 HOURS
     Route: 058
  2. H.P. ACTHAR [Suspect]
     Active Substance: CORTICOTROPIN
     Dosage: 80 UNITS/1 ML, MONDAY/WEDNESDAY/FRIDAY (3 DAYS/WEEK)
     Route: 058
     Dates: start: 201902
  3. PREDNISONE. [Suspect]
     Active Substance: PREDNISONE
     Dosage: WENT FROM 3 TO 2, UNK
     Route: 065
  4. METHOTREXATE. [Concomitant]
     Active Substance: METHOTREXATE
     Indication: PRODUCT USED FOR UNKNOWN INDICATION
     Dosage: UNK
     Route: 065
  5. H.P. ACTHAR [Suspect]
     Active Substance: CORTICOTROPIN
     Dosage: 80 UNITS/1 ML, EVERY 48 HOURS
     Route: 058
     Dates: start: 20170912
  6. H.P. ACTHAR [Suspect]
     Active Substance: CORTICOTROPIN
     Indication: POLYMYOSITIS
     Dosage: 80 UNITS 3 DAYS A WEEK
     Route: 058
     Dates: start: 20160913
  7. H.P. ACTHAR [Suspect]
     Active Substance: CORTICOTROPIN
     Dosage: 80 UNITS/1 ML, EVERY 48 HOURS
     Route: 058
  8. PREDNISONE. [Suspect]
     Active Substance: PREDNISONE
     Indication: PRODUCT USED FOR UNKNOWN INDICATION
     Dosage: 20 MG, EACH DAY
     Route: 065
     Dates: start: 201902
  9. H.P. ACTHAR [Suspect]
     Active Substance: CORTICOTROPIN
     Dosage: 80 UNITS/1 ML, 2 TIMES PER WEEK (MONDAY/FRIDAY)
     Route: 058
     Dates: start: 201810
  10. GAMUNEX [Concomitant]
     Active Substance: HUMAN IMMUNOGLOBULIN G
     Indication: PRODUCT USED FOR UNKNOWN INDICATION
     Dosage: UNK
     Route: 065
  11. H.P. ACTHAR [Suspect]
     Active Substance: CORTICOTROPIN
     Dosage: 80 UNITS/1 ML, EVERY 48 HOURS
     Route: 058

REACTIONS (14)
  - Blood creatine phosphokinase increased [Recovering/Resolving]
  - C-reactive protein increased [Recovering/Resolving]
  - Hunger [Unknown]
  - Injection site bruising [Recovered/Resolved]
  - Injection site pain [Unknown]
  - Memory impairment [Not Recovered/Not Resolved]
  - Weight increased [Unknown]
  - Blood creatinine increased [Not Recovered/Not Resolved]
  - Gait disturbance [Recovering/Resolving]
  - Rash [Unknown]
  - Injection site haemorrhage [Recovered/Resolved]
  - Blood glucose increased [Not Recovered/Not Resolved]
  - Pain in extremity [Unknown]
  - Muscular weakness [Unknown]

NARRATIVE: CASE EVENT DATE: 20171114
